FAERS Safety Report 14257459 (Version 1)
Quarter: 2017Q4

REPORT INFORMATION
  Report Type: Spontaneous
  Country: IN (occurrence: IN)
  Receive Date: 20171207
  Receipt Date: 20171207
  Transmission Date: 20180321
  Serious: Yes (Life-Threatening, Hospitalization, Other)
  Sender: FDA-Public Use
  Company Number: IN-VISTAPHARM, INC.-VER201711-001226

PATIENT
  Age: 41 Year
  Sex: Female

DRUGS (2)
  1. GLIBENCLAMIDE [Suspect]
     Active Substance: GLYBURIDE
     Indication: SUICIDAL IDEATION
     Route: 048
  2. PHENYTOIN. [Suspect]
     Active Substance: PHENYTOIN
     Indication: SUICIDAL IDEATION
     Route: 048

REACTIONS (8)
  - Drug interaction [Recovered/Resolved]
  - Hypotension [Recovered/Resolved]
  - Haemodynamic instability [Recovered/Resolved]
  - Intentional overdose [Recovered/Resolved]
  - Toxicity to various agents [Recovered/Resolved]
  - Sinus bradycardia [Recovered/Resolved]
  - Metabolic acidosis [Recovered/Resolved]
  - Bradyarrhythmia [Recovered/Resolved]
